FAERS Safety Report 13116748 (Version 1)
Quarter: 2017Q1

REPORT INFORMATION
  Report Type: Spontaneous
  Country: FR (occurrence: FR)
  Receive Date: 20170116
  Receipt Date: 20170116
  Transmission Date: 20170428
  Serious: Yes (Disabling)
  Sender: FDA-Public Use
  Company Number: FR-ROCHE-1878302

PATIENT
  Age: 54 Year
  Sex: Female

DRUGS (8)
  1. SOLUPRED (FRANCE) [Concomitant]
     Active Substance: PREDNISOLONE
     Route: 048
  2. FOSAMAX [Concomitant]
     Active Substance: ALENDRONATE SODIUM
     Route: 048
  3. LAMICTAL [Concomitant]
     Active Substance: LAMOTRIGINE
     Route: 065
  4. AVASTIN [Suspect]
     Active Substance: BEVACIZUMAB
     Dosage: 7 CYCLES
     Route: 042
     Dates: start: 20160901, end: 20161013
  5. LAMICTAL [Concomitant]
     Active Substance: LAMOTRIGINE
     Route: 065
  6. BELUSTINE [Suspect]
     Active Substance: LOMUSTINE
     Indication: GLIOBLASTOMA
     Route: 048
     Dates: start: 20160607
  7. AVASTIN [Suspect]
     Active Substance: BEVACIZUMAB
     Indication: GLIOBLASTOMA
     Dosage: 7 CYCLES
     Route: 042
     Dates: start: 20160607
  8. KEPPRA [Concomitant]
     Active Substance: LEVETIRACETAM
     Route: 048

REACTIONS (5)
  - Oropharyngeal pain [Recovered/Resolved]
  - Dysphonia [Not Recovered/Not Resolved]
  - Glossopharyngeal nerve paralysis [Not Recovered/Not Resolved]
  - Off label use [Unknown]
  - Product use issue [Unknown]

NARRATIVE: CASE EVENT DATE: 201609
